FAERS Safety Report 8132478-4 (Version None)
Quarter: 2012Q1

REPORT INFORMATION
  Report Type: 
  Country: None (occurrence: None)
  Receive Date: 20120103
  Receipt Date: 20110917
  Transmission Date: 20120608
  Serious: No
  Sender: FDA-Public Use
  Company Number: AE-2011-001645

PATIENT
  Age: 50 Year
  Sex: Male
  Weight: 106.5953 kg

DRUGS (7)
  1. PEGASYS [Concomitant]
  2. PREPARATION H (PREPARATION H /ISR/) [Concomitant]
  3. INCIVEK [Suspect]
     Dosage: 2250 MG (750 MG,3 IN 1 D),ORAL
     Route: 048
     Dates: start: 20110909
  4. BP MEDICATION (ANTIHYPERTENSIVES) [Concomitant]
  5. RIBAVIRIN [Concomitant]
  6. METOPROLOL TARTRATE [Concomitant]
  7. ASPIRIN [Concomitant]

REACTIONS (3)
  - OCULAR ICTERUS [None]
  - MIGRAINE [None]
  - INFLUENZA LIKE ILLNESS [None]
